FAERS Safety Report 7561826-9 (Version None)
Quarter: 2011Q2

REPORT INFORMATION
  Report Type: 
  Country: None (occurrence: None)
  Receive Date: 20110621
  Receipt Date: 20110609
  Transmission Date: 20111010
  Serious: Yes (Death)
  Sender: FDA-Public Use
  Company Number: FR-BAXTER-2011BH019838

PATIENT
  Age: 74 Year
  Sex: Male

DRUGS (4)
  1. CERNEVIT-12 [Suspect]
     Indication: PARENTERAL NUTRITION
     Route: 042
  2. FLUOROURACIL [Suspect]
     Indication: PROSTATE CANCER
     Route: 065
     Dates: start: 20101001, end: 20101217
  3. OLICLINOMEL [Suspect]
     Indication: PARENTERAL NUTRITION
     Route: 042
     Dates: start: 20100722, end: 20110301
  4. CYCLOPHOSPHAMIDE [Suspect]
     Indication: PROSTATE CANCER
     Route: 065
     Dates: start: 20101001, end: 20101217

REACTIONS (2)
  - DISEASE PROGRESSION [None]
  - DYSGEUSIA [None]
